FAERS Safety Report 7522152-7 (Version None)
Quarter: 2011Q2

REPORT INFORMATION
  Report Type: 
  Country: None (occurrence: None)
  Receive Date: 20110603
  Receipt Date: 20110520
  Transmission Date: 20111010
  Serious: Yes (Other)
  Sender: FDA-Public Use
  Company Number: US-AMGEN-USASP2011021193

PATIENT
  Age: 74 Year
  Sex: Female
  Weight: 68.934 kg

DRUGS (16)
  1. CELLCEPT                           /01275102/ [Concomitant]
     Dosage: 1 G, BID
     Dates: start: 20011111
  2. TACROLIMUS [Concomitant]
     Dosage: .5 MG, BID
     Dates: start: 20011111
  3. FUROSEMIDE [Concomitant]
     Dosage: 20 MG, BID
  4. NOVOLIN R [Concomitant]
     Dosage: 5 UNIT, UNK
  5. PREDNISONE [Concomitant]
     Dosage: 5 MG, QD
     Dates: start: 20011111
  6. NOVOLIN N [Concomitant]
     Dosage: 16 UNIT, UNK
  7. TACROLIMUS [Concomitant]
     Dosage: 1 MG, BID
  8. FOSAMAX [Concomitant]
     Dosage: 70 MG, QWK
  9. CALCIUM CARBONATE [Concomitant]
     Dosage: 1200 MG, QD
  10. PROCRIT [Suspect]
     Indication: RENAL FAILURE CHRONIC
     Dosage: UNK
     Route: 058
     Dates: start: 20090225, end: 20110414
  11. ASPIRIN [Concomitant]
     Dosage: 81 MG, QD
  12. VITAMIN B [Concomitant]
     Dosage: UNK
  13. VITAMIN C                          /00008001/ [Concomitant]
     Dosage: 500 MG, BID
  14. VITAMIN A [Concomitant]
     Dosage: 800 UNIT, QD
  15. CALCITRIOL [Concomitant]
     Dosage: .25 A?G, BID
  16. METOPROLOL TARTRATE [Concomitant]
     Dosage: 25 MG, QHS

REACTIONS (6)
  - HAEMOGLOBIN DECREASED [None]
  - THERAPEUTIC RESPONSE DECREASED [None]
  - BLOOD IRON INCREASED [None]
  - APLASIA PURE RED CELL [None]
  - URINARY TRACT INFECTION [None]
  - CYSTITIS NONINFECTIVE [None]
